FAERS Safety Report 5678063-5 (Version None)
Quarter: 2008Q1

REPORT INFORMATION
  Report Type: 
  Country: None (occurrence: None)
  Receive Date: 20080319
  Receipt Date: 20080311
  Transmission Date: 20080703
  Serious: Yes (Other)
  Sender: FDA-Public Use
  Company Number: CHNY2008DE00842

PATIENT
  Age: 54 Year
  Sex: Female
  Weight: 61 kg

DRUGS (1)
  1. SCOPODERM TTS (NCH)(HYOSCINE HYDROBROMIDE) TRANS-THERAPEUTIC-SYSTEM [Suspect]
     Indication: MOTION SICKNESS
     Dosage: TRANSDERMAL
     Route: 062
     Dates: start: 20071228, end: 20071229

REACTIONS (7)
  - COORDINATION ABNORMAL [None]
  - DISORIENTATION [None]
  - DIZZINESS [None]
  - DRY MOUTH [None]
  - FEELING DRUNK [None]
  - PARAESTHESIA ORAL [None]
  - TONGUE PARALYSIS [None]
